FAERS Safety Report 6456035-0 (Version None)
Quarter: 2009Q4

REPORT INFORMATION
  Report Type: 
  Country: None (occurrence: None)
  Receive Date: 20091125
  Receipt Date: 20080627
  Transmission Date: 20100525
  Serious: Yes (Congenital Anomaly)
  Sender: FDA-Public Use
  Company Number: JP-EISAI INC.-E2090-00894-SOL-JP

PATIENT

DRUGS (2)
  1. ZONEGRAN [Suspect]
     Route: 064
  2. PHENOBARBITAL [Suspect]
     Dosage: UNKNOWN
     Route: 064

REACTIONS (2)
  - DRUG EXPOSURE DURING PREGNANCY [None]
  - VENTRICULAR SEPTAL DEFECT [None]
